FAERS Safety Report 4725573-0 (Version None)
Quarter: 2005Q3

REPORT INFORMATION
  Report Type: 
  Country: None (occurrence: None)
  Receive Date: 20050722
  Receipt Date: 20050722
  Transmission Date: 20060218
  Serious: Yes (Death, Life-Threatening)
  Sender: FDA-Public Use
  Company Number: None

PATIENT
  Sex: Female
  Weight: 63.5036 kg

DRUGS (3)
  1. DURAGESIC-50 [Suspect]
     Indication: ANALGESIC EFFECT
     Dosage: ASSUMED TO BE 1 EVERY 3 DAYS
     Dates: start: 20050430, end: 20050513
  2. BLOOD MEDICATION [Concomitant]
  3. VITAMINS [Concomitant]

REACTIONS (8)
  - ABASIA [None]
  - DIET REFUSAL [None]
  - EMBOLISM [None]
  - HYPOVENTILATION [None]
  - NEOPLASM MALIGNANT [None]
  - REFUSAL OF TREATMENT BY PATIENT [None]
  - SOMNOLENCE [None]
  - THROMBOSIS [None]
